FAERS Safety Report 21914972 (Version 1)
Quarter: 2023Q1

REPORT INFORMATION
  Report Type: Spontaneous
  Country: US (occurrence: US)
  Receive Date: 20230126
  Receipt Date: 20230126
  Transmission Date: 20230417
  Serious: No
  Sender: FDA-Public Use
  Company Number: US-CATALYST PHARMACEUTICALS, INC-2022CAT00482

PATIENT
  Age: 76 Year
  Sex: Male

DRUGS (3)
  1. FIRDAPSE [Suspect]
     Active Substance: AMIFAMPRIDINE PHOSPHATE
     Dosage: 15 MG (1.5 TABLETS), 3X/DAY
     Dates: start: 20190307
  2. COVID VACCINE [Concomitant]
     Dosage: UNK, SECOND BOOSTER SHOT
     Dates: start: 20220402
  3. COVID VACCINE [Concomitant]
     Dosage: UNK

REACTIONS (6)
  - Pyrexia [Recovered/Resolved]
  - COVID-19 [Recovered/Resolved]
  - Joint injury [Unknown]
  - Illness [Recovered/Resolved]
  - Arthralgia [Unknown]
  - Ligament sprain [Unknown]

NARRATIVE: CASE EVENT DATE: 20220101
